FAERS Safety Report 5874278-1 (Version None)
Quarter: 2008Q3

REPORT INFORMATION
  Report Type: 
  Country: None (occurrence: None)
  Receive Date: 20080908
  Receipt Date: 20080901
  Transmission Date: 20090109
  Serious: Yes (Disabling)
  Sender: FDA-Public Use
  Company Number: CS-ASTRAZENECA-2008SE04169

PATIENT
  Age: 16666 Day
  Sex: Female
  Weight: 95 kg

DRUGS (4)
  1. TAMOXIFEN CITRATE [Suspect]
     Indication: BREAST CANCER
     Route: 048
     Dates: start: 20060501
  2. PRILAZID PLUS [Concomitant]
  3. VAZOGAL [Concomitant]
  4. PRESOLOL [Concomitant]

REACTIONS (6)
  - HEPATIC STEATOSIS [None]
  - OEDEMA PERIPHERAL [None]
  - PLATELET COUNT DECREASED [None]
  - VISUAL ACUITY REDUCED [None]
  - WEIGHT INCREASED [None]
  - WHITE BLOOD CELL COUNT DECREASED [None]
